FAERS Safety Report 19648156 (Version 2)
Quarter: 2021Q4

REPORT INFORMATION
  Report Type: Spontaneous
  Country: US (occurrence: US)
  Receive Date: 20210803
  Receipt Date: 20211007
  Transmission Date: 20220303
  Serious: No
  Sender: FDA-Public Use
  Company Number: US-BIOGEN-2021BI01035017

PATIENT
  Sex: Female

DRUGS (1)
  1. TYSABRI [Suspect]
     Active Substance: NATALIZUMAB
     Indication: Multiple sclerosis
     Route: 065
     Dates: start: 20130821

REACTIONS (5)
  - Seborrhoeic keratosis [Unknown]
  - Intertrigo [Unknown]
  - Hyperhidrosis [Unknown]
  - Autoimmune thyroiditis [Unknown]
  - Glaucoma [Unknown]
